FAERS Safety Report 8245650-X (Version None)
Quarter: 2012Q1

REPORT INFORMATION
  Report Type: 
  Country: None (occurrence: None)
  Receive Date: 20120330
  Receipt Date: 20120321
  Transmission Date: 20120608
  Serious: No
  Sender: FDA-Public Use
  Company Number: US-BIOGENIDEC-2010BI024888

PATIENT
  Age: 50 Year
  Sex: Female

DRUGS (3)
  1. TYSABRI [Suspect]
     Indication: MULTIPLE SCLEROSIS
     Route: 042
     Dates: start: 20061106, end: 20111110
  2. AVONEX [Concomitant]
     Indication: MULTIPLE SCLEROSIS
     Route: 030
     Dates: start: 20061101
  3. TYSABRI [Suspect]
     Dates: start: 20120217

REACTIONS (40)
  - VASCULITIS [None]
  - BALANCE DISORDER [None]
  - INSOMNIA [None]
  - CD4 LYMPHOCYTES DECREASED [None]
  - RASH ERYTHEMATOUS [None]
  - MUSCULAR WEAKNESS [None]
  - FALL [None]
  - WHITE BLOOD CELL COUNT DECREASED [None]
  - FATIGUE [None]
  - INFUSION RELATED REACTION [None]
  - DYSPNOEA [None]
  - DRUG HYPERSENSITIVITY [None]
  - HAEMOPTYSIS [None]
  - COUGH [None]
  - WHEEZING [None]
  - WEIGHT DECREASED [None]
  - JOINT SWELLING [None]
  - DYSGRAPHIA [None]
  - RASH [None]
  - DEPRESSION [None]
  - LOCALISED INFECTION [None]
  - PAIN [None]
  - URINARY TRACT INFECTION [None]
  - TOOTH ABSCESS [None]
  - DECREASED APPETITE [None]
  - CELLULITIS [None]
  - HERPES ZOSTER [None]
  - URINARY INCONTINENCE [None]
  - HEADACHE [None]
  - ASTHENIA [None]
  - MEMORY IMPAIRMENT [None]
  - JOINT INJURY [None]
  - DRY MOUTH [None]
  - TENSION HEADACHE [None]
  - MULTIPLE SCLEROSIS [None]
  - BRONCHITIS [None]
  - TOOTH FRACTURE [None]
  - VISUAL ACUITY REDUCED [None]
  - INGROWING NAIL [None]
  - DENTAL CARIES [None]
